FAERS Safety Report 8514208-7 (Version None)
Quarter: 2012Q3

REPORT INFORMATION
  Report Type: 
  Country: None (occurrence: None)
  Receive Date: 20120717
  Receipt Date: 20120709
  Transmission Date: 20120928
  Serious: Yes (Other)
  Sender: FDA-Public Use
  Company Number: BR-PFIZER INC-2012164956

PATIENT
  Age: 58 Year
  Sex: Female

DRUGS (3)
  1. XALATAN [Suspect]
     Indication: GLAUCOMA
     Dosage: 3 UG, 2X/DAY
     Route: 047
     Dates: start: 20101002
  2. PHENOBARBITAL TAB [Concomitant]
     Indication: SLEEP DISORDER
     Dosage: UNK
     Dates: start: 20110101
  3. DIAMOX [Concomitant]
     Indication: HYPERTENSION
     Dosage: UNK
     Dates: start: 20030101

REACTIONS (2)
  - INTRAOCULAR PRESSURE INCREASED [None]
  - OFF LABEL USE [None]
